FAERS Safety Report 5392923-4 (Version None)
Quarter: 2007Q3

REPORT INFORMATION
  Report Type: 
  Country: None (occurrence: None)
  Receive Date: 20070718
  Receipt Date: 20070710
  Transmission Date: 20080115
  Serious: Yes (Death, Hospitalization)
  Sender: FDA-Public Use
  Company Number: 062-20785-06070255

PATIENT
  Age: 74 Year
  Sex: Male

DRUGS (7)
  1. THALIDOMIDE [Suspect]
     Indication: LEUKAEMIA PLASMACYTIC
     Dosage: 50 MG, 1 IN 1 D, ORAL; ORAL
     Route: 048
     Dates: start: 20060201, end: 20060501
  2. THALIDOMIDE [Suspect]
     Indication: LEUKAEMIA PLASMACYTIC
     Dosage: 50 MG, 1 IN 1 D, ORAL; ORAL
     Route: 048
     Dates: start: 20061001
  3. VELCADE [Suspect]
     Indication: LEUKAEMIA PLASMACYTIC
     Dosage: 1 MG;
     Dates: start: 20060201, end: 20061201
  4. VINCRISTINE [Suspect]
     Indication: LEUKAEMIA PLASMACYTIC
     Dosage: 1 MG,
     Dates: start: 20060101, end: 20060101
  5. BENDAMUSTIN (BENDAMUSTINE) [Concomitant]
  6. DEXAMETHASONE TAB [Concomitant]
  7. ADRIAMYCIN PFS [Concomitant]

REACTIONS (4)
  - CONDITION AGGRAVATED [None]
  - DISEASE PROGRESSION [None]
  - POLYNEUROPATHY [None]
  - PULMONARY HYPERTENSION [None]
